FAERS Safety Report 7487590-X (Version None)
Quarter: 2011Q2

REPORT INFORMATION
  Report Type: 
  Country: None (occurrence: None)
  Receive Date: 20110518
  Receipt Date: 20101014
  Transmission Date: 20111010
  Serious: No
  Sender: FDA-Public Use
  Company Number: US-AMGEN-USASP2010000385

PATIENT
  Sex: Female

DRUGS (3)
  1. SENSIPAR [Suspect]
     Indication: HYPERCALCAEMIA
     Dosage: 60 MG, QD
     Dates: start: 20090901, end: 20101001
  2. LEVOTHYROXINE SODIUM [Concomitant]
  3. MELPHALAN HYDROCHLORIDE [Concomitant]
     Dosage: 1 MG, QD

REACTIONS (2)
  - BLOOD CALCIUM INCREASED [None]
  - BONE PAIN [None]
